FAERS Safety Report 4615897-X (Version None)
Quarter: 2005Q1

REPORT INFORMATION
  Report Type: 
  Country: None (occurrence: None)
  Receive Date: 20050318
  Receipt Date: 20050311
  Transmission Date: 20050727
  Serious: Yes (Hospitalization)
  Sender: FDA-Public Use
  Company Number: 2005014466

PATIENT
  Age: 74 Year
  Sex: Female
  Weight: 52.1 kg

DRUGS (4)
  1. LIPITOR [Suspect]
     Indication: HYPERLIPIDAEMIA
     Dosage: 5 MG (5 MG, 1 IN 1 D), ORAL
     Route: 048
     Dates: start: 20020927, end: 20041228
  2. CARBAMAZEPINE [Suspect]
     Indication: EPILEPSY
     Dosage: 600 MG (200 MG, 3 IN 1 D), ORAL
     Route: 048
     Dates: start: 19900709, end: 20041228
  3. ETHYL ICOSAPENTATE (ETHYL ICOSAPENTATE) [Concomitant]
  4. PHOSPHATIDYL CHOLINE (PHOSPHATIDYL CHOLINE) [Concomitant]

REACTIONS (4)
  - DYSPNOEA EXERTIONAL [None]
  - FATIGUE [None]
  - LABORATORY TEST ABNORMAL [None]
  - PANCYTOPENIA [None]
